FAERS Safety Report 5670882-4 (Version None)
Quarter: 2008Q1

REPORT INFORMATION
  Report Type: 
  Country: None (occurrence: None)
  Receive Date: 20080318
  Receipt Date: 20080229
  Transmission Date: 20080703
  Serious: Yes (Congenital Anomaly)
  Sender: FDA-Public Use
  Company Number: A0685061A

PATIENT
  Sex: Male
  Weight: 2.7 kg

DRUGS (3)
  1. PAXIL [Suspect]
     Indication: ANXIETY
     Dates: start: 20000701
  2. VITAMIN TAB [Concomitant]
     Dates: start: 20030101, end: 20040101
  3. PROCARDIA [Concomitant]
     Dates: start: 20040101

REACTIONS (7)
  - BICUSPID AORTIC VALVE [None]
  - BRAIN NEOPLASM [None]
  - CARDIAC MURMUR [None]
  - CEREBRAL VENTRICLE DILATATION [None]
  - DRUG EXPOSURE DURING PREGNANCY [None]
  - PREMATURE BABY [None]
  - PULMONARY MALFORMATION [None]
